FAERS Safety Report 7980688-9 (Version None)
Quarter: 2011Q4

REPORT INFORMATION
  Report Type: 
  Country: None (occurrence: None)
  Receive Date: 20111214
  Receipt Date: 20111207
  Transmission Date: 20120403
  Serious: Yes (Other)
  Sender: FDA-Public Use
  Company Number: US-BAYER-2011-117980

PATIENT
  Age: 82 Year
  Sex: Female
  Weight: 40.816 kg

DRUGS (3)
  1. ASPIRIN [Suspect]
     Indication: ISCHAEMIC HEART DISEASE PROPHYLAXIS
     Dosage: 0.5 DF, QD, BOTTLE COUNT 100S
     Route: 048
  2. ATENOLOL [Concomitant]
  3. BENAZEPRIL HYDROCHLORIDE [Concomitant]

REACTIONS (7)
  - DYSPHAGIA [None]
  - EATING DISORDER [None]
  - THROAT IRRITATION [None]
  - EAR PAIN [None]
  - CHOKING [None]
  - COUGH [None]
  - OROPHARYNGEAL PAIN [None]
